FAERS Safety Report 14642670 (Version 1)
Quarter: 2018Q1

REPORT INFORMATION
  Report Type: Spontaneous
  Country: RO (occurrence: RO)
  Receive Date: 20180315
  Receipt Date: 20180315
  Transmission Date: 20180509
  Serious: Yes (Death, Other)
  Sender: FDA-Public Use
  Company Number: RO-ASTRAZENECA-2018SE31246

PATIENT
  Age: 70 Year
  Sex: Female

DRUGS (2)
  1. BRILIQUE [Suspect]
     Active Substance: TICAGRELOR
     Indication: ACUTE MYOCARDIAL INFARCTION
     Route: 048
  2. BRILIQUE [Suspect]
     Active Substance: TICAGRELOR
     Indication: STENT PLACEMENT
     Route: 048

REACTIONS (4)
  - Death [Fatal]
  - Diabetes mellitus [Unknown]
  - Obesity [Unknown]
  - Renal failure [Unknown]

NARRATIVE: CASE EVENT DATE: 20180101
